FAERS Safety Report 10167991 (Version 5)
Quarter: 2016Q2

REPORT INFORMATION
  Report Type: Report from Study
  Country: TR (occurrence: TR)
  Receive Date: 20140512
  Receipt Date: 20160516
  Transmission Date: 20160815
  Serious: Yes (Hospitalization, Other)
  Sender: FDA-Public Use
  Company Number: TR-ABBVIE-14P-161-1235866-00

PATIENT
  Age: 64 Year
  Sex: Female

DRUGS (1)
  1. HUMIRA [Suspect]
     Active Substance: ADALIMUMAB
     Indication: RHEUMATOID ARTHRITIS
     Route: 058
     Dates: start: 20131115, end: 20140207

REACTIONS (7)
  - Hypertension [Recovered/Resolved]
  - Hyperglycaemia [Recovering/Resolving]
  - Diabetes mellitus [Recovering/Resolving]
  - Blindness unilateral [Not Recovered/Not Resolved]
  - Syncope [Recovered/Resolved]
  - Blindness unilateral [Not Recovered/Not Resolved]
  - Eye injury [Not Recovered/Not Resolved]

NARRATIVE: CASE EVENT DATE: 201402
